FAERS Safety Report 12492097 (Version 1)
Quarter: 2016Q2

REPORT INFORMATION
  Report Type: Spontaneous
  Country: US (occurrence: None)
  Receive Date: 20160622
  Receipt Date: 20160622
  Transmission Date: 20160815
  Serious: Yes (Hospitalization, Other)
  Sender: FDA-Public Use
  Company Number: ES-ALSI-201600163

PATIENT
  Age: 75 Year
  Sex: Female

DRUGS (1)
  1. OXIGENO MEDICINAL AIR LIQUIDE MEDICINAL 200 BAR GAS COMPRIMIDO MEDICI OXYGEN AIR LIQUIDE SANTE INTERNATIONAL [Suspect]
     Active Substance: OXYGEN

REACTIONS (4)
  - Fibula fracture [None]
  - Product package associated injury [None]
  - Accidental exposure to product packaging [None]
  - Fall [None]

NARRATIVE: CASE EVENT DATE: 20160610
